FAERS Safety Report 6264429-1 (Version None)
Quarter: 2009Q3

REPORT INFORMATION
  Report Type: 
  Country: None (occurrence: None)
  Receive Date: 20090710
  Receipt Date: 20090707
  Transmission Date: 20100115
  Serious: Yes (Life-Threatening)
  Sender: FDA-Public Use
  Company Number: D0061627A

PATIENT
  Age: 45 Year

DRUGS (5)
  1. ZIDOVUDINE [Suspect]
     Indication: HIV INFECTION
     Route: 065
     Dates: start: 19970301
  2. LAMIVUDINE [Suspect]
     Indication: HIV INFECTION
     Route: 065
     Dates: start: 19970301
  3. COMBIVIR [Suspect]
     Indication: HIV INFECTION
     Route: 065
     Dates: end: 20090401
  4. SAQUINAVIR [Suspect]
     Indication: ENZYME INHIBITION
     Route: 065
     Dates: start: 19991001, end: 20081001
  5. CRIXIVAN [Suspect]
     Indication: ENZYME INHIBITION
     Route: 065
     Dates: start: 19970301, end: 19991001

REACTIONS (8)
  - CAROTID ARTERY STENOSIS [None]
  - CEREBROVASCULAR ACCIDENT [None]
  - HYPERTENSION [None]
  - MOBILITY DECREASED [None]
  - MUSCLE SPASMS [None]
  - PERIPHERAL ARTERIAL OCCLUSIVE DISEASE [None]
  - RENAL DISORDER [None]
  - VASCULAR OCCLUSION [None]
